FAERS Safety Report 4974817-9 (Version None)
Quarter: 2006Q1

REPORT INFORMATION
  Report Type: 
  Country: None (occurrence: None)
  Receive Date: 20060216
  Receipt Date: 20040723
  Transmission Date: 20060701
  Serious: Yes (Other)
  Sender: FDA-Public Use
  Company Number: 2004IM000702

PATIENT
  Age: 47 Year
  Sex: Female
  Weight: 85 kg

DRUGS (15)
  1. INTERFERON GAMMA-1B [Suspect]
     Indication: OVARIAN CANCER
     Dosage: 100 UG, TIW, SUBCUTANEOUS
     Route: 058
     Dates: start: 20040317, end: 20040512
  2. CARBOPLATIN [Suspect]
     Indication: OVARIAN CANCER
     Dosage: 738 MG, Q3W, INTRAVENOUS
     Route: 042
     Dates: start: 20040317, end: 20040503
  3. PACLITAXEL [Suspect]
     Indication: OVARIAN CANCER
     Dosage: 332.5 MG, Q3W, INTRAVENOUS
     Route: 042
     Dates: start: 20040317, end: 20040503
  4. VENTOLIN [Concomitant]
  5. FLOVENT [Concomitant]
  6. FLONASE [Concomitant]
  7. TYLENOL (CAPLET) [Concomitant]
  8. DECADRON [Concomitant]
  9. PEPCID [Concomitant]
  10. KYTRIL [Concomitant]
  11. BENADRYL [Concomitant]
  12. STEMETIL TABLET [Concomitant]
  13. ADVIL [Concomitant]
  14. DUCOLAX [Concomitant]
  15. COLACE [Concomitant]

REACTIONS (1)
  - NEUTROPENIA [None]
